FAERS Safety Report 4674728-2 (Version None)
Quarter: 2005Q2

REPORT INFORMATION
  Report Type: 
  Country: None (occurrence: None)
  Receive Date: 20050526
  Receipt Date: 20050519
  Transmission Date: 20051028
  Serious: Yes (Other)
  Sender: FDA-Public Use
  Company Number: PHBS2005JP07323

PATIENT

DRUGS (2)
  1. DIOVAN [Suspect]
     Route: 048
  2. CALCIUM CHANNEL BLOCKERS [Concomitant]

REACTIONS (1)
  - ATRIOVENTRICULAR BLOCK [None]
